FAERS Safety Report 6160312-0 (Version None)
Quarter: 2009Q2

REPORT INFORMATION
  Report Type: 
  Country: None (occurrence: None)
  Receive Date: 20090415
  Receipt Date: 20090415
  Transmission Date: 20091009
  Serious: Yes (Death)
  Sender: FDA-Public Use
  Company Number: None

PATIENT
  Age: 40 Year
  Sex: Female
  Weight: 127.0072 kg

DRUGS (2)
  1. PROZAC [Suspect]
     Dates: start: 20070401, end: 20081101
  2. AXERT [Concomitant]
     Dates: end: 20081101

REACTIONS (1)
  - DEATH [None]
